FAERS Safety Report 8770888 (Version 3)
Quarter: 2012Q4

REPORT INFORMATION
  Report Type: 
  Country: US (occurrence: US)
  Receive Date: 20120906
  Receipt Date: 20120927
  Transmission Date: 20130627
  Serious: No
  Sender: FDA-Public Use
  Company Number: US-B.I. PHARMACEUTICALS,INC./RIDGEFIELD-2012-BP-21197PF

PATIENT
  Sex: Male

DRUGS (3)
  1. SPIRIVA [Suspect]
  2. SYMBICORT [Concomitant]
  3. ADVAIR [Concomitant]

REACTIONS (1)
  - Drug ineffective [Unknown]
